FAERS Safety Report 25525957 (Version 1)
Quarter: 2025Q3

REPORT INFORMATION
  Report Type: Spontaneous
  Country: EU (occurrence: EU)
  Receive Date: 20250707
  Receipt Date: 20250707
  Transmission Date: 20251020
  Serious: Yes (Hospitalization, Other)
  Sender: AMGEN
  Company Number: EU-AMGEN-FRASP2025130789

PATIENT
  Age: 44 Year
  Sex: Female

DRUGS (3)
  1. ETANERCEPT [Suspect]
     Active Substance: ETANERCEPT
     Indication: Rheumatoid arthritis
     Dosage: 25 MILLIGRAM, 2 TIMES/WK
     Route: 058
     Dates: start: 200308
  2. ETANERCEPT [Suspect]
     Active Substance: ETANERCEPT
     Dosage: 25 MILLIGRAM, 2 TIMES/WK
     Route: 058
     Dates: end: 200605
  3. ETANERCEPT [Suspect]
     Active Substance: ETANERCEPT
     Dosage: 25 MILLIGRAM, 2 TIMES/WK
     Route: 058

REACTIONS (2)
  - Scleritis [Recovered/Resolved]
  - Rheumatoid arthritis [Not Recovered/Not Resolved]

NARRATIVE: CASE EVENT DATE: 20051101
